FAERS Safety Report 13840086 (Version 3)
Quarter: 2017Q3

REPORT INFORMATION
  Report Type: Report from Study
  Country: PH (occurrence: PH)
  Receive Date: 20170807
  Receipt Date: 20170921
  Transmission Date: 20171127
  Serious: Yes (Other)
  Sender: FDA-Public Use
  Company Number: PHHY2017PH111559

PATIENT
  Age: 46 Year
  Sex: Female
  Weight: 117 kg

DRUGS (2)
  1. LIPITOR [Concomitant]
     Active Substance: ATORVASTATIN CALCIUM
     Indication: PRODUCT USED FOR UNKNOWN INDICATION
     Dosage: UNK
     Route: 065
  2. EXJADE [Suspect]
     Active Substance: DEFERASIROX
     Indication: PRODUCT USED FOR UNKNOWN INDICATION
     Dosage: 4 DF, QD (1000 MG)
     Route: 048
     Dates: start: 20170330, end: 20170725

REACTIONS (11)
  - Pain [Unknown]
  - Pollakiuria [Unknown]
  - Blood creatinine increased [Unknown]
  - Haemochromatosis [Unknown]
  - Nephrolithiasis [Unknown]
  - Micturition urgency [Unknown]
  - Chromaturia [Unknown]
  - Aspartate aminotransferase increased [Unknown]
  - Blood uric acid decreased [Unknown]
  - Pyrexia [Unknown]
  - Flank pain [Unknown]

NARRATIVE: CASE EVENT DATE: 20170722
